FAERS Safety Report 8962598 (Version 4)
Quarter: 2013Q1

REPORT INFORMATION
  Report Type: Spontaneous
  Country: US (occurrence: US)
  Receive Date: 20121214
  Receipt Date: 20130312
  Transmission Date: 20140127
  Serious: Yes (Other)
  Sender: FDA-Public Use
  Company Number: PHEH2012US024408

PATIENT
  Sex: Male

DRUGS (10)
  1. EXELON PATCH [Suspect]
     Indication: DEMENTIA
     Dosage: 4.6 MG/24 HOURS
     Route: 062
  2. EXELON PATCH [Suspect]
  3. CARBIDOPA [Concomitant]
  4. NAMENDA [Concomitant]
  5. MONONITRAT [Concomitant]
  6. VITAMIN D3 [Concomitant]
  7. ATORVASTATIN [Concomitant]
  8. AMLODIPINE [Concomitant]
  9. ISORBIDE [Concomitant]
  10. NITROSTAT [Concomitant]

REACTIONS (3)
  - Skin cancer [Unknown]
  - Cardiac valve disease [Unknown]
  - Cardiac disorder [Unknown]
